FAERS Safety Report 7731043-8 (Version None)
Quarter: 2011Q3

REPORT INFORMATION
  Report Type: 
  Country: None (occurrence: None)
  Receive Date: 20110906
  Receipt Date: 20110906
  Transmission Date: 20111222
  Serious: Yes (Other)
  Sender: FDA-Public Use
  Company Number: None

PATIENT
  Age: 61 Year
  Sex: Female
  Weight: 770.19 kg

DRUGS (1)
  1. PROLIA [Suspect]
     Indication: OSTEOPOROSIS
     Dosage: 60MG
     Route: 058
     Dates: start: 20110308, end: 20110901

REACTIONS (6)
  - DISCOMFORT [None]
  - BONE PAIN [None]
  - MYALGIA [None]
  - ARTHRALGIA [None]
  - NECK PAIN [None]
  - MUSCULOSKELETAL PAIN [None]
